FAERS Safety Report 9548206 (Version 2)
Quarter: 2013Q3

REPORT INFORMATION
  Report Type: Spontaneous
  Country: BR (occurrence: BR)
  Receive Date: 20130924
  Receipt Date: 20130924
  Transmission Date: 20140515
  Serious: Yes (Death, Hospitalization)
  Sender: FDA-Public Use
  Company Number: BR-PFIZER INC-2013246649

PATIENT
  Age: 60 Year
  Sex: Male
  Weight: 78 kg

DRUGS (9)
  1. SUTENT [Suspect]
     Indication: RENAL CELL CARCINOMA
     Dosage: 50 MG, ONCE DAILY CYCLIC (4 TO 2)
     Route: 048
     Dates: start: 20130814, end: 20130910
  2. HYDROCHLOROTHIAZIDE [Concomitant]
     Dosage: UNK
  3. JANUVIA [Concomitant]
     Dosage: UNK
  4. OMEPRAZOLE [Concomitant]
     Dosage: UNK
  5. TRAMADOL [Concomitant]
     Dosage: UNK
  6. DEXAMETHASONE [Concomitant]
     Dosage: UNK
  7. NAUSEDRON [Concomitant]
     Dosage: UNK
  8. DIPYRONE [Concomitant]
     Dosage: UNK
  9. NISTATIN [Concomitant]
     Dosage: UNK

REACTIONS (8)
  - Death [Fatal]
  - Asthenia [Unknown]
  - Vomiting [Unknown]
  - Abdominal pain upper [Unknown]
  - Somnolence [Unknown]
  - Glossodynia [Unknown]
  - Dysgeusia [Unknown]
  - Dry skin [Unknown]
